FAERS Safety Report 8965063 (Version 2)
Quarter: 2013Q1

REPORT INFORMATION
  Report Type: Report from Study
  Country: BR (occurrence: BR)
  Receive Date: 20121213
  Receipt Date: 20130225
  Transmission Date: 20140127
  Serious: Yes (Hospitalization, Other)
  Sender: FDA-Public Use
  Company Number: BR-US-EMD SERONO, INC.-7181226

PATIENT
  Age: 41 Year
  Sex: Female

DRUGS (1)
  1. REBIF [Suspect]
     Indication: RELAPSING-REMITTING MULTIPLE SCLEROSIS
     Route: 058
     Dates: start: 20101107, end: 20121015

REACTIONS (5)
  - Coma [Unknown]
  - Aphonia [Unknown]
  - Somnolence [Unknown]
  - Neuromyelitis optica [Unknown]
  - Motor dysfunction [Not Recovered/Not Resolved]
